FAERS Safety Report 7229130-6 (Version None)
Quarter: 2011Q1

REPORT INFORMATION
  Report Type: 
  Country: None (occurrence: None)
  Receive Date: 20110117
  Receipt Date: 20110106
  Transmission Date: 20110831
  Serious: Yes (Death)
  Sender: FDA-Public Use
  Company Number: US-JNJFOC-20110101695

PATIENT
  Age: 70 Year
  Sex: Male

DRUGS (9)
  1. ETHANOL [Suspect]
     Indication: PRODUCT USED FOR UNKNOWN INDICATION
     Route: 048
  2. LEVOTHYROXINE [Concomitant]
     Route: 065
  3. QUETIAPINE [Concomitant]
     Route: 065
  4. PRAVASTATIN [Concomitant]
     Route: 065
  5. ACETAMINOPHEN [Suspect]
     Indication: PRODUCT USED FOR UNKNOWN INDICATION
     Route: 048
  6. FLUOXETINE [Concomitant]
     Route: 065
  7. ACETAMINOPHEN [Suspect]
     Route: 048
  8. PERPHENAZINE [Concomitant]
     Route: 065
  9. ASPIRIN [Concomitant]
     Route: 065

REACTIONS (3)
  - MULTI-ORGAN FAILURE [None]
  - INTENTIONAL OVERDOSE [None]
  - COMPLETED SUICIDE [None]
